FAERS Safety Report 9402021 (Version 1)
Quarter: 2013Q3

REPORT INFORMATION
  Report Type: Spontaneous
  Country: US (occurrence: US)
  Receive Date: 20130716
  Receipt Date: 20130716
  Transmission Date: 20140515
  Serious: Yes (Other)
  Sender: FDA-Public Use
  Company Number: PHEH2013US014546

PATIENT
  Sex: Female

DRUGS (2)
  1. RITALIN [Suspect]
     Indication: SLEEP DISORDER
     Dosage: 5 MG, UNK
  2. RITALIN [Suspect]
     Dosage: 10 MG, UNK
     Dates: start: 20130709

REACTIONS (5)
  - Heart rate decreased [Unknown]
  - Hypervigilance [Unknown]
  - Decreased appetite [Unknown]
  - Headache [Unknown]
  - Drug ineffective [Unknown]
